FAERS Safety Report 8613245-1 (Version None)
Quarter: 2012Q3

REPORT INFORMATION
  Report Type: 
  Country: None (occurrence: None)
  Receive Date: 20120822
  Receipt Date: 20120802
  Transmission Date: 20120928
  Serious: Yes (Disabling)
  Sender: FDA-Public Use
  Company Number: DK-009507513-1208DNK002921

PATIENT

DRUGS (1)
  1. PROPECIA [Suspect]
     Dosage: UNK
     Dates: start: 20020201

REACTIONS (4)
  - MOBILITY DECREASED [None]
  - SUICIDAL IDEATION [None]
  - PROSTATITIS [None]
  - PELVIC PAIN [None]
